FAERS Safety Report 8409558-9 (Version None)
Quarter: 2012Q2

REPORT INFORMATION
  Report Type: 
  Country: None (occurrence: None)
  Receive Date: 20120605
  Receipt Date: 20120530
  Transmission Date: 20120825
  Serious: Yes (Death, Hospitalization, Other)
  Sender: FDA-Public Use
  Company Number: IT-BAYER-2012-026809

PATIENT
  Age: 64 Year
  Sex: Male
  Weight: 86 kg

DRUGS (8)
  1. CORTONE [Concomitant]
     Indication: HYPERTENSION
     Dosage: 25 MG, DAILY
     Route: 048
     Dates: start: 20101109, end: 20120124
  2. AMOXICILLIN [Concomitant]
     Dosage: 2 G, DAILY
     Route: 048
     Dates: start: 20120112, end: 20120120
  3. KARVEA [Concomitant]
     Indication: HYPERTENSION
     Dosage: DAILY DOSE 150 MG
     Route: 048
  4. LEVOFLOXACIN [Concomitant]
     Indication: PYREXIA
     Dosage: 500 MG, DAILY
     Route: 048
     Dates: start: 20120105, end: 20120112
  5. NEXAVAR [Suspect]
     Indication: HEPATIC NEOPLASM MALIGNANT
     Dosage: 400 MG, DAILY
     Route: 048
     Dates: start: 20120108, end: 20120128
  6. CEFTRIAXONE [Concomitant]
     Dosage: 1 G, DAILY
     Route: 030
     Dates: start: 20120112, end: 20120122
  7. CARVEDILOL [Concomitant]
     Indication: HYPERTENSION
     Dosage: DAILY DOSE 2 DF
     Route: 048
  8. LEVOFLOXACIN [Concomitant]
     Indication: COUGH

REACTIONS (4)
  - HEPATITIS ACUTE [None]
  - JAUNDICE [None]
  - PLEURAL EFFUSION [None]
  - LOCALISED INTRAABDOMINAL FLUID COLLECTION [None]
